FAERS Safety Report 4475560-5 (Version None)
Quarter: 2004Q4

REPORT INFORMATION
  Report Type: 
  Country: None (occurrence: None)
  Receive Date: 20041015
  Receipt Date: 20041007
  Transmission Date: 20050328
  Serious: Yes (Life-Threatening)
  Sender: FDA-Public Use
  Company Number: US-MERCK-0410USA01195

PATIENT
  Age: 63 Year
  Sex: Female

DRUGS (6)
  1. [THERAPY UNSPECIFIED] [Concomitant]
     Route: 065
  2. FOSAMAX [Concomitant]
     Route: 048
  3. NEXIUM [Concomitant]
     Route: 065
  4. FOLIC ACID [Concomitant]
     Route: 065
  5. HYDRO-CHLOR [Concomitant]
     Route: 065
  6. VIOXX [Suspect]
     Indication: ARTHRITIS
     Route: 048
     Dates: start: 20031222, end: 20040930

REACTIONS (2)
  - CHEST PAIN [None]
  - HEART VALVE STENOSIS [None]
